FAERS Safety Report 20438623 (Version 1)
Quarter: 2022Q1

REPORT INFORMATION
  Report Type: Spontaneous
  Country: US (occurrence: None)
  Receive Date: 20220204
  Receipt Date: 20220204
  Transmission Date: 20220423
  Serious: Yes (Life-Threatening, Hospitalization)
  Sender: FDA-Public Use
  Company Number: None

PATIENT
  Age: 92 Year
  Sex: Female

DRUGS (1)
  1. FERUMOXYTOL [Suspect]
     Active Substance: FERUMOXYTOL
     Indication: Iron deficiency anaemia
     Dosage: FREQUENCY : ONCE;?
     Route: 042
     Dates: start: 20020201, end: 20220201

REACTIONS (2)
  - Unresponsive to stimuli [None]
  - Infusion related reaction [None]

NARRATIVE: CASE EVENT DATE: 20220201
